FAERS Safety Report 18391857 (Version 1)
Quarter: 2020Q4

REPORT INFORMATION
  Report Type: Spontaneous
  Country: US (occurrence: US)
  Receive Date: 20201016
  Receipt Date: 20201016
  Transmission Date: 20210114
  Serious: Yes (Other)
  Sender: FDA-Public Use
  Company Number: US-TEVA-2020-US-1838916

PATIENT
  Age: 78 Year
  Sex: Female

DRUGS (2)
  1. ANASTROZOLE TEVA [Suspect]
     Active Substance: ANASTROZOLE
     Route: 065
  2. TAXOL [Suspect]
     Active Substance: PACLITAXEL
     Route: 065

REACTIONS (3)
  - Alopecia [Not Recovered/Not Resolved]
  - Neuropathy peripheral [Not Recovered/Not Resolved]
  - Bone pain [Not Recovered/Not Resolved]
